FAERS Safety Report 16747397 (Version 2)
Quarter: 2019Q3

REPORT INFORMATION
  Report Type: Spontaneous
  Country: BG (occurrence: BG)
  Receive Date: 20190827
  Receipt Date: 20190906
  Transmission Date: 20191005
  Serious: Yes (Death)
  Sender: FDA-Public Use
  Company Number: BG-ROCHE-2385903

PATIENT
  Age: 50 Year
  Sex: Male

DRUGS (4)
  1. DOCETAXEL. [Concomitant]
     Active Substance: DOCETAXEL
     Indication: SMALL CELL LUNG CANCER
  2. CARBOPLATIN. [Concomitant]
     Active Substance: CARBOPLATIN
     Indication: SMALL CELL LUNG CANCER
  3. NEBIVOLOL. [Concomitant]
     Active Substance: NEBIVOLOL
     Route: 065
  4. PIRFENIDONE. [Suspect]
     Active Substance: PIRFENIDONE
     Indication: IDIOPATHIC PULMONARY FIBROSIS
     Route: 065

REACTIONS (1)
  - Small cell lung cancer [Fatal]

NARRATIVE: CASE EVENT DATE: 2017
